FAERS Safety Report 18220641 (Version 1)
Quarter: 2020Q3

REPORT INFORMATION
  Report Type: Spontaneous
  Country: TH (occurrence: TH)
  Receive Date: 20200902
  Receipt Date: 20200902
  Transmission Date: 20201103
  Serious: Yes (Hospitalization)
  Sender: FDA-Public Use
  Company Number: TH-009507513-2008THA001119

PATIENT
  Age: 38 Year
  Sex: Female
  Weight: 65 kg

DRUGS (2)
  1. NOXAFIL [Suspect]
     Active Substance: POSACONAZOLE
     Indication: ANTIFUNGAL PROPHYLAXIS
     Dosage: LOADING DOSE, ON THE FIRST DATE
     Route: 048
     Dates: start: 20190812, end: 20190812
  2. NOXAFIL [Suspect]
     Active Substance: POSACONAZOLE
     Dosage: MAINTENANCE DOSE OF 300 MILLIGRAM, QD
     Route: 048
     Dates: start: 20190813, end: 20190822

REACTIONS (2)
  - Rash maculo-papular [Recovered/Resolved]
  - Face oedema [Recovered/Resolved]

NARRATIVE: CASE EVENT DATE: 20190820
